FAERS Safety Report 8426561-3 (Version None)
Quarter: 2012Q2

REPORT INFORMATION
  Report Type: 
  Country: None (occurrence: None)
  Receive Date: 20120611
  Receipt Date: 20120606
  Transmission Date: 20120825
  Serious: Yes (Other)
  Sender: FDA-Public Use
  Company Number: JP-BAYER-200812539BYL

PATIENT
  Age: 71 Year
  Sex: Male
  Weight: 58.8 kg

DRUGS (21)
  1. CEFTAZIDIME SODIUM [Concomitant]
     Dosage: 1 G, QD
     Route: 042
     Dates: start: 20011215, end: 20011221
  2. DIGOXIN [Concomitant]
     Route: 048
     Dates: start: 20030409
  3. CEFOTIAM HYDROCHLORIDE [Concomitant]
     Dosage: 1 G, QD
     Route: 042
     Dates: start: 20030502, end: 20030509
  4. MAGNEVIST [Suspect]
     Indication: ANGIOGRAM
     Dosage: 15 ML, ONCE
     Route: 042
     Dates: start: 20030225, end: 20030225
  5. ALLOPURINOL [Concomitant]
     Dosage: 100 MG, BID
     Route: 048
     Dates: start: 20010101, end: 20030615
  6. ASPIRIN [Concomitant]
     Dosage: 100 MG, QD
     Route: 048
     Dates: start: 20030409
  7. UNASYN [Concomitant]
     Dosage: 0.75 G, BID
     Route: 042
     Dates: start: 20011213, end: 20011214
  8. ALOSENN [Concomitant]
     Dosage: 0.5 G, QD
     Route: 048
     Dates: start: 20010101, end: 20030615
  9. CEFAZOLIN [Concomitant]
     Route: 042
     Dates: start: 20020211, end: 20020220
  10. OMNISCAN [Suspect]
     Route: 042
     Dates: start: 20011218, end: 20011218
  11. OMNISCAN [Suspect]
     Route: 042
     Dates: start: 20030430, end: 20030430
  12. CEFDINIR [Concomitant]
     Dosage: 100 MG, QD
     Route: 048
     Dates: start: 20011207, end: 20011213
  13. CEFAZOLIN [Concomitant]
     Route: 042
     Dates: start: 20030421, end: 20030423
  14. FAMOTIDINE [Concomitant]
     Dosage: 20 MG, QD
     Route: 048
     Dates: start: 20010101, end: 20030615
  15. LOXONIN [Concomitant]
     Dosage: 60 MG, PRN
     Route: 048
     Dates: start: 20010101, end: 20030615
  16. OMNISCAN [Suspect]
     Indication: ANGIOGRAM
     Dosage: 15 ML, ONCE
     Route: 042
     Dates: start: 20011211, end: 20011211
  17. CEFAZOLIN [Concomitant]
     Route: 042
     Dates: start: 20020301, end: 20020302
  18. WASSER V V [Concomitant]
     Dosage: 1 G, TID
     Route: 048
     Dates: start: 20010101, end: 20030615
  19. CALCIUM CARBONATE [Concomitant]
     Route: 048
     Dates: start: 20010101, end: 20030101
  20. NEUER [Concomitant]
     Dosage: 200 MG, TID
     Route: 048
     Dates: start: 20010101, end: 20030615
  21. PURSENNID [Concomitant]
     Dosage: 12 MG, QD
     Route: 048
     Dates: start: 20010101, end: 20030615

REACTIONS (3)
  - NEPHROGENIC SYSTEMIC FIBROSIS [None]
  - MUSCULOSKELETAL STIFFNESS [None]
  - SKIN DISORDER [None]
